FAERS Safety Report 8045836-3 (Version None)
Quarter: 2012Q1

REPORT INFORMATION
  Report Type: 
  Country: None (occurrence: None)
  Receive Date: 20120112
  Receipt Date: 20120112
  Transmission Date: 20120608
  Serious: Yes (Hospitalization)
  Sender: FDA-Public Use
  Company Number: None

PATIENT
  Sex: Male
  Weight: 73.6 kg

DRUGS (1)
  1. CISPLATIN [Suspect]
     Dosage: 191 MG

REACTIONS (7)
  - HEART RATE INCREASED [None]
  - PROCTALGIA [None]
  - TACHYCARDIA [None]
  - PYREXIA [None]
  - HYPOTENSION [None]
  - PAIN [None]
  - ANAL ABSCESS [None]
